FAERS Safety Report 4357353-2 (Version None)
Quarter: 2004Q2

REPORT INFORMATION
  Report Type: 
  Country: None (occurrence: None)
  Receive Date: 20040511
  Receipt Date: 20040511
  Transmission Date: 20050107
  Serious: Yes (Life-Threatening, Hospitalization)
  Sender: FDA-Public Use
  Company Number: None

PATIENT
  Age: 78 Year
  Sex: Female
  Weight: 91.5 kg

DRUGS (15)
  1. METOLAZONE [Suspect]
     Indication: OEDEMA
     Dosage: 2.5 MG PO DAILY
     Route: 048
  2. PROTONIX [Concomitant]
  3. PURINETHOL [Concomitant]
  4. PLAVIX [Concomitant]
  5. ASPIRIN [Concomitant]
  6. FLUOXETINE [Concomitant]
  7. METHOTREXATE [Concomitant]
  8. DIAZEPAM [Concomitant]
  9. SYNTHROID [Concomitant]
  10. VICODIN [Concomitant]
  11. POTASSIUM [Concomitant]
  12. THEOPHYLLINE [Concomitant]
  13. LASIX [Concomitant]
  14. ALDACTONE [Concomitant]
  15. CLINORIL [Concomitant]

REACTIONS (5)
  - CHEST PAIN [None]
  - DYSPNOEA [None]
  - ERUCTATION [None]
  - MEDICATION ERROR [None]
  - STOOL ANALYSIS ABNORMAL [None]
